FAERS Safety Report 26200904 (Version 1)
Quarter: 2025Q4

REPORT INFORMATION
  Report Type: Report from Study
  Country: EU (occurrence: EU)
  Receive Date: 20251226
  Receipt Date: 20251226
  Transmission Date: 20260117
  Serious: Yes (Hospitalization, Other)
  Sender: AUROBINDO
  Company Number: EU-AUROBINDO-AUR-APL-2017-00100

PATIENT
  Age: 13 Year
  Sex: Female

DRUGS (6)
  1. PREDNISONE [Suspect]
     Active Substance: PREDNISONE
     Indication: Product used for unknown indication
     Dosage: 20 MILLIGRAM/KILOGRAM, ONCE A DAY(0.5 MG/KG/DAY)
     Route: 065
  2. PREDNISONE [Suspect]
     Active Substance: PREDNISONE
     Dosage: 30 MG, UNK
     Route: 061
  3. ISOTRETINOIN [Suspect]
     Active Substance: ISOTRETINOIN
     Indication: Acne
     Dosage: 0.2 MG/KG, 10 MG
     Route: 065
  4. ISOTRETINOIN [Suspect]
     Active Substance: ISOTRETINOIN
     Dosage: 10 MG
     Route: 065
  5. NAPROXEN [Concomitant]
     Active Substance: NAPROXEN
     Indication: Arthralgia
     Dosage: UNK
     Route: 065
  6. COLCHICINE [Concomitant]
     Active Substance: COLCHICINE
     Indication: Arthralgia
     Dosage: UNK
     Route: 065

REACTIONS (3)
  - Acne fulminans [Recovering/Resolving]
  - Dyslipidaemia [Unknown]
  - Weight increased [Unknown]
